FAERS Safety Report 8926793 (Version 2)
Quarter: 2012Q4

REPORT INFORMATION
  Report Type: 
  Country: ZA (occurrence: ZA)
  Receive Date: 20121127
  Receipt Date: 20121217
  Transmission Date: 20130627
  Serious: Yes (Hospitalization)
  Sender: FDA-Public Use
  Company Number: ZA-ELI_LILLY_AND_COMPANY-ZA201211004316

PATIENT
  Age: 17 Year
  Sex: Female

DRUGS (6)
  1. STRATTERA [Suspect]
     Indication: ATTENTION DEFICIT/HYPERACTIVITY DISORDER
     Dosage: 60mg, Unk
     Route: 048
     Dates: start: 201006
  2. STRATTERA [Suspect]
     Dosage: 80mg, Unk
     Dates: start: 2012
  3. STRATTERA [Suspect]
     Dosage: 80mg, one dose
     Dates: start: 20121112, end: 20121112
  4. CYMBALTA [Suspect]
     Indication: DEPRESSION
     Dosage: 30mg, UNK
     Dates: start: 2011
  5. CYMBALTA [Suspect]
     Dosage: 30mg, one dose
     Dates: start: 20121112, end: 20121112
  6. TOFRANIL [Concomitant]

REACTIONS (3)
  - Suicide attempt [Unknown]
  - Intentional overdose [Unknown]
  - Depression [Unknown]
